FAERS Safety Report 10617741 (Version 2)
Quarter: 2014Q4

REPORT INFORMATION
  Report Type: Spontaneous
  Country: JP (occurrence: JP)
  Receive Date: 20141201
  Receipt Date: 20141201
  Transmission Date: 20150529
  Serious: Yes (Hospitalization)
  Sender: FDA-Public Use
  Company Number: JP-SUCAMPO AG-SPI201400870

PATIENT
  Age: 24 Year
  Sex: Female

DRUGS (11)
  1. UNKNOWN [Concomitant]
     Active Substance: UNSPECIFIED INGREDIENT
     Dosage: UNK, 3 TABLETS
     Route: 048
  2. TEGRETOL [Concomitant]
     Active Substance: CARBAMAZEPINE
     Dosage: UNK
     Route: 048
  3. AMITIZA [Suspect]
     Active Substance: LUBIPROSTONE
     Indication: CONSTIPATION
     Dosage: 24 MCG, BID
     Route: 048
     Dates: start: 20141004, end: 20141118
  4. MAGMITT [Concomitant]
     Active Substance: MAGNESIUM OXIDE
     Dosage: UNK, 6 TABLETS
     Route: 048
  5. ALYSE [Concomitant]
     Dosage: UNK, 3 TABLETS
     Route: 048
  6. PRIMPERAN [Concomitant]
     Active Substance: METOCLOPRAMIDE HYDROCHLORIDE
     Dosage: UNK, 3 TABLETS
     Route: 048
  7. LAMICTAL [Concomitant]
     Active Substance: LAMOTRIGINE
     Dosage: UNK
     Route: 048
  8. SODIUM PICOSULFATE [Concomitant]
     Active Substance: SODIUM PICOSULFATE
  9. ASPARA POTASSIUM [Concomitant]
     Active Substance: POTASSIUM ASPARTATE
     Dosage: UNK, 4 TABLETS
     Route: 048
  10. NAUZELIN [Concomitant]
     Active Substance: DOMPERIDONE
     Dosage: UNK, 3 TABLETS
     Route: 048
  11. POLYFUL [Concomitant]
     Active Substance: CALCIUM POLYCARBOPHIL
     Dosage: UNK, 3 PACKAGES
     Route: 048

REACTIONS (11)
  - Dehydration [Unknown]
  - Vomiting [Unknown]
  - Blood cholesterol increased [None]
  - Blood triglycerides increased [None]
  - Malaise [Unknown]
  - Low density lipoprotein increased [None]
  - Blood potassium decreased [None]
  - Renal failure [Recovered/Resolved]
  - Blood sodium decreased [None]
  - Electrolyte imbalance [Recovered/Resolved]
  - Diarrhoea [Unknown]

NARRATIVE: CASE EVENT DATE: 20141118
